FAERS Safety Report 8841926 (Version 1)
Quarter: 2012Q4

REPORT INFORMATION
  Report Type: Spontaneous
  Country: US (occurrence: None)
  Receive Date: 20121015
  Receipt Date: 20121015
  Transmission Date: 20130627
  Serious: Yes (Death, Life-Threatening, Hospitalization)
  Sender: FDA-Public Use
  Company Number: None

PATIENT
  Age: 51 Year
  Sex: Male
  Weight: 59 kg

DRUGS (4)
  1. ERIBULIN [Suspect]
     Indication: HEAD AND NECK CANCER METASTATIC
     Dosage: day 1, 8 q21 days
     Route: 042
     Dates: start: 20120920, end: 20120927
  2. CETUXIMAB [Suspect]
     Indication: HEAD AND NECK CANCER METASTATIC
     Dosage: day 1, 8, 15 Q21 days
     Route: 042
     Dates: start: 20120920
  3. CETUXIMAB [Suspect]
     Indication: HEAD AND NECK CANCER METASTATIC
     Dates: start: 20120927
  4. CETUXIMAB [Suspect]
     Indication: HEAD AND NECK CANCER METASTATIC
     Dates: start: 20121004

REACTIONS (5)
  - Acute respiratory failure [None]
  - Malignant pleural effusion [None]
  - Lung infection [None]
  - Respiratory acidosis [None]
  - Pneumonia aspiration [None]
